FAERS Safety Report 20490615 (Version 1)
Quarter: 2022Q1

REPORT INFORMATION
  Report Type: Spontaneous
  Country: US (occurrence: None)
  Receive Date: 20220218
  Receipt Date: 20220218
  Transmission Date: 20220423
  Serious: No
  Sender: FDA-Public Use
  Company Number: None

PATIENT
  Sex: Female

DRUGS (5)
  1. TYMLOS [Suspect]
     Active Substance: ABALOPARATIDE
     Indication: Foot fracture
     Dosage: FREQUENCY : DAILY;?
     Route: 058
     Dates: start: 20211124
  2. PROLID [Concomitant]
  3. DEVICE [Concomitant]
     Active Substance: DEVICE
  4. LEVOTHYROXINE [Concomitant]
     Active Substance: LEVOTHYROXINE
  5. HORIZANT [Concomitant]
     Active Substance: GABAPENTIN ENACARBIL

REACTIONS (3)
  - Heart rate increased [None]
  - Dizziness [None]
  - Oxygen saturation decreased [None]
